FAERS Safety Report 15385536 (Version 1)
Quarter: 2018Q3

REPORT INFORMATION
  Report Type: Spontaneous
  Country: US (occurrence: US)
  Receive Date: 20180914
  Receipt Date: 20180914
  Transmission Date: 20181010
  Serious: No
  Sender: FDA-Public Use
  Company Number: US-JNJFOC-20180832565

PATIENT
  Sex: Female
  Weight: 61.24 kg

DRUGS (4)
  1. BENZOTROPINE [Concomitant]
     Active Substance: BENZTROPINE
     Route: 065
  2. ADDERALL [Concomitant]
     Active Substance: AMPHETAMINE ASPARTATE\AMPHETAMINE SULFATE\DEXTROAMPHETAMINE SACCHARATE\DEXTROAMPHETAMINE SULFATE
     Route: 065
  3. INVEGA [Suspect]
     Active Substance: PALIPERIDONE
     Indication: SCHIZOAFFECTIVE DISORDER
     Dosage: 3 IN THE MORNING, 6 AT NIGHT
     Route: 048
     Dates: start: 2017
  4. LITHIUM. [Concomitant]
     Active Substance: LITHIUM
     Route: 065

REACTIONS (4)
  - Anxiety [Not Recovered/Not Resolved]
  - Off label use [Unknown]
  - Inappropriate schedule of drug administration [Unknown]
  - Hallucination, auditory [Not Recovered/Not Resolved]

NARRATIVE: CASE EVENT DATE: 2017
